FAERS Safety Report 12847064 (Version 1)
Quarter: 2016Q4

REPORT INFORMATION
  Report Type: Spontaneous
  Country: US (occurrence: US)
  Receive Date: 20161013
  Receipt Date: 20161013
  Transmission Date: 20170207
  Serious: Yes (Other)
  Sender: FDA-Public Use
  Company Number: None

PATIENT
  Age: 3 Year
  Sex: Female
  Weight: 16.51 kg

DRUGS (2)
  1. HYOSCYAMINE 0.125MG (FRANKLIN) [Suspect]
     Active Substance: HYOSCYAMINE
     Indication: MUSCLE SPASMS
     Dosage: 1/2 TABLET PO
     Route: 048
     Dates: start: 20161011
  2. HYOSCYAMINE 0.125MG (FRANKLIN) [Suspect]
     Active Substance: HYOSCYAMINE
     Indication: ABDOMINAL PAIN
     Dosage: 1/2 TABLET PO
     Route: 048
     Dates: start: 20161011

REACTIONS (5)
  - Adverse drug reaction [None]
  - Altered state of consciousness [None]
  - Mydriasis [None]
  - Product quality issue [None]
  - Blepharospasm [None]

NARRATIVE: CASE EVENT DATE: 20161011
